FAERS Safety Report 6278647-X (Version None)
Quarter: 2009Q3

REPORT INFORMATION
  Report Type: 
  Country: None (occurrence: None)
  Receive Date: 20090722
  Receipt Date: 20090507
  Transmission Date: 20100115
  Serious: No
  Sender: FDA-Public Use
  Company Number: US-BAUSCH-2009BL002272

PATIENT
  Age: 30 Year
  Sex: Male

DRUGS (1)
  1. OPCON-A [Suspect]
     Indication: SEASONAL ALLERGY
     Route: 047
     Dates: start: 20090504, end: 20090507

REACTIONS (2)
  - DRY EYE [None]
  - OCULAR HYPERAEMIA [None]
